FAERS Safety Report 8252867-7 (Version None)
Quarter: 2012Q2

REPORT INFORMATION
  Report Type: 
  Country: None (occurrence: None)
  Receive Date: 20120402
  Receipt Date: 20120206
  Transmission Date: 20120825
  Serious: No
  Sender: FDA-Public Use
  Company Number: US-ABBOTT-12P-163-0903809-00

PATIENT
  Sex: Male
  Weight: 68.1 kg

DRUGS (5)
  1. ANDROGEL [Suspect]
     Indication: BLOOD TESTOSTERONE DECREASED
     Route: 061
     Dates: start: 20100101, end: 20100101
  2. ANDROGEL [Suspect]
     Route: 061
     Dates: start: 20100101, end: 20100101
  3. ANDROGEL [Suspect]
     Route: 061
     Dates: start: 20110101
  4. FISH OIL [Concomitant]
     Indication: BLOOD TRIGLYCERIDES INCREASED
  5. FISH OIL [Concomitant]
     Indication: BLOOD CHOLESTEROL INCREASED
     Route: 048

REACTIONS (7)
  - SEXUAL DYSFUNCTION [None]
  - MOOD SWINGS [None]
  - FEELING ABNORMAL [None]
  - BLOOD TESTOSTERONE ABNORMAL [None]
  - HEADACHE [None]
  - BLOOD CHOLESTEROL INCREASED [None]
  - BLOOD TRIGLYCERIDES INCREASED [None]
